FAERS Safety Report 5553118-4 (Version None)
Quarter: 2007Q4

REPORT INFORMATION
  Report Type: 
  Country: None (occurrence: None)
  Receive Date: 20071211
  Receipt Date: 20071107
  Transmission Date: 20080405
  Serious: Yes (Other)
  Sender: FDA-Public Use
  Company Number: CHPA2007US08008

PATIENT
  Age: 78 Year
  Sex: Female
  Weight: 72.6 kg

DRUGS (4)
  1. FERROUS SULFATE TAB [Suspect]
     Indication: MINERAL SUPPLEMENTATION
     Dosage: 960 MG, QD FOR 2 DAYS, ORAL, 640 MG, QD FOR 2 DAYS, ORAL, (DOSE WAS DECREASED), ORAL
     Route: 048
     Dates: start: 20070101
  2. FERROUS SULFATE TAB [Suspect]
     Indication: MINERAL SUPPLEMENTATION
     Dosage: 960 MG, QD FOR 2 DAYS, ORAL, 640 MG, QD FOR 2 DAYS, ORAL, (DOSE WAS DECREASED), ORAL
     Route: 048
  3. CALCIUM (CALCIUM) [Concomitant]
  4. SYNTHROID [Concomitant]

REACTIONS (9)
  - ANXIETY [None]
  - CRYING [None]
  - HEART RATE INCREASED [None]
  - INCORRECT DOSE ADMINISTERED [None]
  - INSOMNIA [None]
  - MUSCLE TWITCHING [None]
  - NERVOUSNESS [None]
  - OVERDOSE [None]
  - PAIN [None]
